FAERS Safety Report 7435913-X (Version None)
Quarter: 2011Q2

REPORT INFORMATION
  Report Type: 
  Country: None (occurrence: None)
  Receive Date: 20110425
  Receipt Date: 20110418
  Transmission Date: 20111010
  Serious: Yes (Death, Disabling)
  Sender: FDA-Public Use
  Company Number: JP-CEPHALON-2011001182

PATIENT
  Sex: Male
  Weight: 60 kg

DRUGS (11)
  1. FENTANYL [Concomitant]
  2. FLUCONAZOLE [Concomitant]
     Dates: end: 20110305
  3. ALLOPURINOL [Concomitant]
     Dates: end: 20110305
  4. LACTOMIN [Concomitant]
     Dates: end: 20110305
  5. MAGNESIUM OXIDE [Concomitant]
     Dates: end: 20110305
  6. METHYLPREDNISOLONE SODIUM SUCCINATE [Concomitant]
     Dates: start: 20110307, end: 20110315
  7. SULFAMETHOXAZOLE AND TRIMETHOPRIM [Concomitant]
     Dates: end: 20110305
  8. FAMOTIDINE [Concomitant]
     Dates: end: 20110305
  9. BENDAMUSTINE HCL [Suspect]
     Indication: B-CELL LYMPHOMA
     Route: 042
     Dates: start: 20110214, end: 20110215
  10. DEXAMETHASONE SODIUM PHOSPHATE [Concomitant]
     Dates: start: 20110228, end: 20110304
  11. MOSAPRIDE CITRATE [Concomitant]
     Dates: end: 20110305

REACTIONS (9)
  - ANAEMIA [None]
  - ASPARTATE AMINOTRANSFERASE INCREASED [None]
  - B-CELL LYMPHOMA [None]
  - ELECTROLYTE IMBALANCE [None]
  - OLIGURIA [None]
  - PYREXIA [None]
  - RENAL FAILURE ACUTE [None]
  - BLOOD LACTATE DEHYDROGENASE INCREASED [None]
  - PLATELET COUNT DECREASED [None]
